FAERS Safety Report 22627265 (Version 1)
Quarter: 2023Q2

REPORT INFORMATION
  Report Type: Spontaneous
  Country: CN (occurrence: CN)
  Receive Date: 20230622
  Receipt Date: 20230622
  Transmission Date: 20230722
  Serious: Yes (Other)
  Sender: FDA-Public Use
  Company Number: CN-AstraZeneca-2023A136483

PATIENT

DRUGS (4)
  1. METOPROLOL SUCCINATE [Suspect]
     Active Substance: METOPROLOL SUCCINATE
     Indication: Hypertension
     Dosage: 47.5 MILLIGRAM, QD
     Route: 048
     Dates: start: 20230515, end: 20230605
  2. BACILLUS NOS;BIFIDOBACTERIUM NOS;ENTEROCOCCUS NOS;LACTOBACILLUS NOS [Concomitant]
     Indication: Constipation
     Dosage: THREE TABLETS
     Route: 048
     Dates: start: 20230222, end: 20230605
  3. ROSUVASTATIN CALCIUM [Concomitant]
     Active Substance: ROSUVASTATIN CALCIUM
     Indication: Hyperlipidaemia
     Route: 048
     Dates: start: 20211214, end: 20230605
  4. ESTAZOLAM [Concomitant]
     Active Substance: ESTAZOLAM
     Indication: Insomnia
     Route: 048
     Dates: start: 20220301, end: 20230605

REACTIONS (3)
  - Hepatic function abnormal [Unknown]
  - Abnormal faeces [Unknown]
  - Abdominal discomfort [Unknown]

NARRATIVE: CASE EVENT DATE: 20230605
